FAERS Safety Report 8444668-1 (Version None)
Quarter: 2012Q2

REPORT INFORMATION
  Report Type: 
  Country: None (occurrence: None)
  Receive Date: 20120618
  Receipt Date: 20120608
  Transmission Date: 20120825
  Serious: Yes (Disabling)
  Sender: FDA-Public Use
  Company Number: JP-ASTRAZENECA-2012SE34391

PATIENT
  Age: 16905 Day
  Sex: Male
  Weight: 51 kg

DRUGS (3)
  1. VITAMIN B12 [Concomitant]
     Indication: NEUROPATHY PERIPHERAL
     Route: 048
     Dates: start: 20120425
  2. SAIREITO [Concomitant]
     Indication: NEUROMA
     Route: 048
     Dates: start: 20120425
  3. MARCAINE HYDROCHLORIDE PRESERVATIVE FREE [Suspect]
     Indication: SPINAL ANAESTHESIA
     Route: 029
     Dates: start: 20120424

REACTIONS (1)
  - MONOPARESIS [None]
